FAERS Safety Report 5254827-7 (Version None)
Quarter: 2007Q1

REPORT INFORMATION
  Report Type: 
  Country: None (occurrence: None)
  Receive Date: 20070305
  Receipt Date: 20070219
  Transmission Date: 20070707
  Serious: Yes (Death)
  Sender: FDA-Public Use
  Company Number: KR-KINGPHARMUSA00001-K200700205

PATIENT

DRUGS (2)
  1. EPINEPHRINE [Suspect]
     Dosage: .3 ML, SINGLE
     Route: 058
  2. EPINEPHRINE [Suspect]
     Dosage: 1.0 ML
     Route: 042

REACTIONS (9)
  - BLOOD PRESSURE INCREASED [None]
  - COMA [None]
  - GRAND MAL CONVULSION [None]
  - HEADACHE [None]
  - INTRAVENTRICULAR HAEMORRHAGE [None]
  - LOSS OF CONSCIOUSNESS [None]
  - OXYGEN SATURATION DECREASED [None]
  - RESPIRATORY RATE DECREASED [None]
  - SUBARACHNOID HAEMORRHAGE [None]
